FAERS Safety Report 9363629 (Version 1)
Quarter: 2013Q2

REPORT INFORMATION
  Report Type: Spontaneous
  Country: US (occurrence: US)
  Receive Date: 20130624
  Receipt Date: 20130624
  Transmission Date: 20140414
  Serious: No
  Sender: FDA-Public Use
  Company Number: US-BAYER-2013-068884

PATIENT
  Age: 50 Year
  Sex: Female

DRUGS (18)
  1. ALEVE CAPLET [Suspect]
     Dosage: UNK
  2. COLECALCIFEROL [Concomitant]
     Dosage: 1 DF, QD
     Route: 048
  3. COLECALCIFEROL [Concomitant]
     Dosage: 1 DF, QD
     Route: 048
  4. COLECALCIFEROL [Concomitant]
  5. CIMETIDINE [Concomitant]
     Dosage: 1 DF, QD
     Route: 048
  6. CYCLOBENZAPRINE [Concomitant]
     Dosage: 1 DF, TID
  7. CYMBALTA [Concomitant]
     Dosage: 1 DF, BID
     Route: 048
  8. DIOVAN [Concomitant]
     Dosage: 1 DF, QD
     Route: 048
  9. HYDROXYZINE [Concomitant]
     Dosage: 1 DF, QD
     Route: 048
  10. IBUPROFEN [Concomitant]
     Dosage: 1 DF, QD
     Route: 048
  11. LIDODERM [Concomitant]
     Dosage: 1 PATCH DAILY
  12. LIPITOR [Concomitant]
     Dosage: 1 DF, QD
     Route: 048
  13. MAXALT [Concomitant]
     Dosage: 1 DF, QD
     Route: 048
  14. MICARDIS [Concomitant]
     Dosage: 1 DF, QD
     Route: 048
  15. NEURONTIN [Concomitant]
     Dosage: 1 DF, TID
     Route: 048
  16. TOPAMAX [Concomitant]
     Dosage: 1 DF, BID
     Route: 048
  17. TRAMADOL [Concomitant]
     Dosage: 1 DF, QD
     Route: 048
  18. TRICOR [Concomitant]
     Dosage: 1 DF, QD
     Route: 048

REACTIONS (1)
  - Drug hypersensitivity [None]
